FAERS Safety Report 10204639 (Version 1)
Quarter: 2014Q2

REPORT INFORMATION
  Report Type: Spontaneous
  Country: US (occurrence: None)
  Receive Date: 20140527
  Receipt Date: 20140527
  Transmission Date: 20141212
  Serious: Yes (Other)
  Sender: FDA-Public Use
  Company Number: None

PATIENT
  Age: 12 Year
  Sex: Male
  Weight: 71.67 kg

DRUGS (5)
  1. MONTELUKAST 5 MG UNKNOWN [Suspect]
     Indication: ASTHMA
     Dosage: 5 MG, 1
     Dates: start: 20131003, end: 20140517
  2. MONTELUKAST 5 MG UNKNOWN [Suspect]
     Indication: RHINITIS ALLERGIC
     Dosage: 5 MG, 1
     Dates: start: 20131003, end: 20140517
  3. ALBUTEROL [Concomitant]
  4. FLUTICASONE NASAL SPRAY [Concomitant]
  5. ALLERGY IMUNOTHERAPY [Concomitant]

REACTIONS (2)
  - Rash pruritic [None]
  - Urticaria [None]
